FAERS Safety Report 24584541 (Version 1)
Quarter: 2024Q4

REPORT INFORMATION
  Report Type: Report from Study
  Country: US (occurrence: US)
  Receive Date: 20241106
  Receipt Date: 20241106
  Transmission Date: 20250115
  Serious: Yes (Death)
  Sender: BAYER HEALTHCARE PHARMACEUTICALS INC.
  Company Number: US-BAYER-2024A158590

PATIENT
  Age: 59 Year
  Sex: Male
  Weight: 104.31 kg

DRUGS (10)
  1. ADEMPAS [Suspect]
     Active Substance: RIOCIGUAT
     Indication: Pulmonary arterial hypertension
     Dosage: UNK
     Dates: start: 20240510
  2. ADEMPAS [Suspect]
     Active Substance: RIOCIGUAT
     Indication: Pulmonary arterial hypertension
     Dosage: 2.5 MG, TID
     Route: 048
  3. ATORVASTATIN CALCIUM [Concomitant]
     Active Substance: ATORVASTATIN CALCIUM
  4. OPSUMIT [Concomitant]
     Active Substance: MACITENTAN
  5. BUMETANIDE [Concomitant]
     Active Substance: BUMETANIDE
  6. METOLAZONE [Concomitant]
     Active Substance: METOLAZONE
  7. LISINOPRIL [Concomitant]
     Active Substance: LISINOPRIL
  8. ASPIRIN [Concomitant]
     Active Substance: ASPIRIN
  9. CARVEDILOL [Concomitant]
     Active Substance: CARVEDILOL
  10. UPTRAVI [Concomitant]
     Active Substance: SELEXIPAG

REACTIONS (1)
  - Death [Fatal]
